FAERS Safety Report 11175081 (Version 3)
Quarter: 2015Q4

REPORT INFORMATION
  Report Type: Report from Study
  Country: JP (occurrence: JP)
  Receive Date: 20150609
  Receipt Date: 20151228
  Transmission Date: 20160304
  Serious: Yes (Death, Other)
  Sender: FDA-Public Use
  Company Number: JP-OTSUKA-2015_002727

PATIENT
  Age: 72 Year
  Sex: Male
  Weight: 61.8 kg

DRUGS (4)
  1. TOLVAPTAN [Suspect]
     Active Substance: TOLVAPTAN
     Dosage: 7.5 MG, QD, IN THE MORNING
     Route: 048
     Dates: start: 20150523, end: 20150528
  2. TOLVAPTAN [Suspect]
     Active Substance: TOLVAPTAN
     Indication: FLUID RETENTION
     Dosage: 3.75 MG, QD, IN THE MORNING
     Route: 048
     Dates: start: 20150520, end: 20150522
  3. FUROSEMIDE. [Concomitant]
     Active Substance: FUROSEMIDE
     Indication: FLUID RETENTION
     Dosage: 20 MG, DAILY DOSE
     Route: 048
     Dates: end: 20150526
  4. PARIET [Concomitant]
     Active Substance: RABEPRAZOLE SODIUM
     Indication: PRODUCT USED FOR UNKNOWN INDICATION
     Dosage: 10 MG, DAILY DOSE
     Route: 048
     Dates: end: 20150528

REACTIONS (2)
  - Hepatic failure [Fatal]
  - Gastric ulcer haemorrhage [Not Recovered/Not Resolved]

NARRATIVE: CASE EVENT DATE: 20150527
